FAERS Safety Report 6638680-2 (Version None)
Quarter: 2010Q1

REPORT INFORMATION
  Report Type: 
  Country: None (occurrence: None)
  Receive Date: 20100317
  Receipt Date: 20100310
  Transmission Date: 20100710
  Serious: Yes (Death)
  Sender: FDA-Public Use
  Company Number: DE-ROCHE-690973

PATIENT
  Age: 95 Year
  Sex: Male

DRUGS (2)
  1. BEVACIZUMAB [Suspect]
     Dosage: DOSE AND ROUTE AS PER PROTOCOL. FORM: INJECTION
     Route: 031
     Dates: end: 20100130
  2. RANIBIZUMAB [Suspect]
     Dosage: DOSE AND ROUTE AS PER PROTOCOL. FORM: INJECTION
     Route: 031
     Dates: end: 20100130

REACTIONS (2)
  - CARDIAC FAILURE [None]
  - INTESTINAL HAEMORRHAGE [None]
